FAERS Safety Report 6474250-7 (Version None)
Quarter: 2009Q4

REPORT INFORMATION
  Report Type: 
  Country: None (occurrence: None)
  Receive Date: 20091204
  Receipt Date: 20091125
  Transmission Date: 20100525
  Serious: Yes (Other)
  Sender: FDA-Public Use
  Company Number: PHHY2009GB52538

PATIENT
  Sex: Male
  Weight: 86.7 kg

DRUGS (1)
  1. MIACALCIN [Suspect]

REACTIONS (2)
  - DRUG INEFFECTIVE [None]
  - PAIN [None]
